FAERS Safety Report 10881984 (Version 1)
Quarter: 2015Q1

REPORT INFORMATION
  Report Type: Report from Study
  Country: US (occurrence: US)
  Receive Date: 20150303
  Receipt Date: 20150303
  Transmission Date: 20150721
  Serious: Yes (Hospitalization, Other)
  Sender: FDA-Public Use
  Company Number: US-ABBVIE-15K-163-1334093-00

PATIENT
  Age: 42 Year
  Sex: Female

DRUGS (2)
  1. HUMIRA [Suspect]
     Active Substance: ADALIMUMAB
     Indication: ANKYLOSING SPONDYLITIS
     Route: 065
     Dates: end: 20141231
  2. HUMIRA [Suspect]
     Active Substance: ADALIMUMAB
     Indication: RHEUMATOID ARTHRITIS
     Route: 065
     Dates: start: 20150223

REACTIONS (7)
  - Device issue [Unknown]
  - Pneumonia [Recovered/Resolved]
  - Tonsillectomy [Recovered/Resolved]
  - Tonsillectomy [Recovered/Resolved]
  - Post procedural haemorrhage [Not Recovered/Not Resolved]
  - Haematemesis [Unknown]
  - Injection site reaction [Unknown]

NARRATIVE: CASE EVENT DATE: 201501
